FAERS Safety Report 7297758-3 (Version None)
Quarter: 2011Q1

REPORT INFORMATION
  Report Type: 
  Country: None (occurrence: None)
  Receive Date: 20110214
  Receipt Date: 20110214
  Transmission Date: 20110831
  Serious: Yes (Hospitalization)
  Sender: FDA-Public Use
  Company Number: None

PATIENT
  Age: 13 Year
  Sex: Male
  Weight: 59.3 kg

DRUGS (1)
  1. STRATTERA [Suspect]
     Indication: ANXIETY
     Dosage: 40 MG DAILY PO
     Route: 048
     Dates: start: 20110211, end: 20110212

REACTIONS (2)
  - INTENTIONAL OVERDOSE [None]
  - SELF-INJURIOUS IDEATION [None]
